FAERS Safety Report 21739211 (Version 1)
Quarter: 2022Q4

REPORT INFORMATION
  Report Type: Spontaneous
  Country: US (occurrence: None)
  Receive Date: 20221215
  Receipt Date: 20221215
  Transmission Date: 20230113
  Serious: No
  Sender: FDA-Public Use
  Company Number: None

PATIENT
  Age: 81 Year
  Sex: Male

DRUGS (2)
  1. PRAZOSIN [Suspect]
     Active Substance: PRAZOSIN
     Indication: Nightmare
  2. QUETIAPINE FUMARATE [Suspect]
     Active Substance: QUETIAPINE FUMARATE
     Indication: Major depression
     Dosage: FREQUENCY : DAILY;?
     Route: 048

REACTIONS (4)
  - Syncope [None]
  - Impaired driving ability [None]
  - Amnesia [None]
  - Loss of consciousness [None]

NARRATIVE: CASE EVENT DATE: 20220718
